FAERS Safety Report 7262238-8 (Version None)
Quarter: 2011Q1

REPORT INFORMATION
  Report Type: 
  Country: None (occurrence: None)
  Receive Date: 20110120
  Receipt Date: 20110111
  Transmission Date: 20110831
  Serious: No
  Sender: FDA-Public Use
  Company Number: 2010US004391

PATIENT
  Age: 8 Year
  Sex: Male

DRUGS (1)
  1. FK506 - OINTMENT (TACROLIMUS) OINTMENT [Suspect]
     Indication: DERMATITIS ATOPIC
     Dosage: 0.1 %, /D, TOPICAL
     Route: 061
     Dates: start: 20060708

REACTIONS (1)
  - ASTHMA [None]
